FAERS Safety Report 8161434-5 (Version None)
Quarter: 2012Q1

REPORT INFORMATION
  Report Type: 
  Country: None (occurrence: None)
  Receive Date: 20120224
  Receipt Date: 20120216
  Transmission Date: 20120608
  Serious: Yes (Hospitalization, Other)
  Sender: FDA-Public Use
  Company Number: US-BAYER-2010-007086

PATIENT
  Age: 38 Year
  Sex: Female
  Weight: 66 kg

DRUGS (9)
  1. LOESTRIN FE 1/20 [Concomitant]
     Dosage: UNK
     Dates: start: 20061207
  2. PERMETHRIN [Concomitant]
     Dosage: UNK
     Route: 061
     Dates: start: 20060918
  3. YASMIN [Suspect]
     Indication: PREMENSTRUAL SYNDROME
  4. YAZ [Suspect]
     Indication: PREMENSTRUAL SYNDROME
  5. CIPRO [Concomitant]
     Dosage: UNK
     Dates: start: 20050601
  6. YASMIN [Suspect]
     Indication: ACNE
     Dosage: UNK
     Dates: start: 20050101, end: 20060101
  7. YAZ [Suspect]
     Indication: ACNE
     Dosage: UNK
     Dates: start: 20050101, end: 20060101
  8. TEA, GREEN [Concomitant]
     Indication: WEIGHT CONTROL
  9. EPHEDRA [Concomitant]
     Dosage: UNK
     Route: 048
     Dates: start: 20040101, end: 20050101

REACTIONS (18)
  - CHOLECYSTITIS CHRONIC [None]
  - HEART RATE INCREASED [None]
  - CHOLECYSTECTOMY [None]
  - THROAT TIGHTNESS [None]
  - DIZZINESS [None]
  - GAIT DISTURBANCE [None]
  - RASH GENERALISED [None]
  - CHOLELITHIASIS [None]
  - DIPLOPIA [None]
  - DISCOMFORT [None]
  - FALL [None]
  - INJURY [None]
  - PAIN [None]
  - ABNORMAL SENSATION IN EYE [None]
  - DYSPNOEA [None]
  - SOMNOLENCE [None]
  - VOMITING [None]
  - TREMOR [None]
